FAERS Safety Report 7303083-4 (Version None)
Quarter: 2011Q1

REPORT INFORMATION
  Report Type: 
  Country: None (occurrence: None)
  Receive Date: 20110221
  Receipt Date: 20110207
  Transmission Date: 20110831
  Serious: No
  Sender: FDA-Public Use
  Company Number: US-BIOGENIDEC-2010BI034051

PATIENT
  Sex: Female

DRUGS (1)
  1. TYSABRI [Suspect]
     Indication: MULTIPLE SCLEROSIS
     Route: 042
     Dates: start: 20100910

REACTIONS (13)
  - DYSPNOEA [None]
  - MENTAL IMPAIRMENT [None]
  - MOBILITY DECREASED [None]
  - PAIN [None]
  - MALAISE [None]
  - GAIT DISTURBANCE [None]
  - URINARY INCONTINENCE [None]
  - MEMORY IMPAIRMENT [None]
  - FATIGUE [None]
  - PAIN IN EXTREMITY [None]
  - BONE PAIN [None]
  - BACK PAIN [None]
  - ARTHRALGIA [None]
